FAERS Safety Report 8432346-4 (Version None)
Quarter: 2012Q2

REPORT INFORMATION
  Report Type: 
  Country: None (occurrence: None)
  Receive Date: 20120613
  Receipt Date: 20120611
  Transmission Date: 20120825
  Serious: Yes (Hospitalization)
  Sender: FDA-Public Use
  Company Number: PHHO2012US000875

PATIENT
  Sex: Female
  Weight: 136.5 kg

DRUGS (15)
  1. ILARIS [Suspect]
     Indication: GOUTY ARTHRITIS
     Dosage: UNK
     Route: 058
     Dates: start: 20111101
  2. TRIAMCINOLONE ACETONIDE [Suspect]
     Indication: GOUTY ARTHRITIS
     Dosage: UNK
     Route: 058
     Dates: start: 20111101
  3. ILARIS [Suspect]
     Dosage: UNK
     Route: 058
     Dates: start: 20111101
  4. LASIX [Concomitant]
  5. LYRICA [Concomitant]
  6. DIOVAN [Concomitant]
  7. XANAX [Concomitant]
  8. PLACEBO [Suspect]
     Indication: GOUTY ARTHRITIS
     Dosage: UNK
     Route: 058
     Dates: start: 20111101
  9. ALLOPURINOL [Concomitant]
  10. FLEXERIL [Concomitant]
  11. MOBIC [Concomitant]
  12. AUGMENTIN [Concomitant]
  13. LORTAB [Concomitant]
  14. STEROIDS NOS [Concomitant]
  15. BLINDED NO TREATMENT RECEIVED [Suspect]
     Indication: GOUTY ARTHRITIS
     Dosage: UNK
     Route: 058
     Dates: start: 20111101

REACTIONS (2)
  - VIRAL INFECTION [None]
  - HEADACHE [None]
